FAERS Safety Report 7912083-2 (Version None)
Quarter: 2011Q4

REPORT INFORMATION
  Report Type: 
  Country: None (occurrence: None)
  Receive Date: 20111114
  Receipt Date: 20111103
  Transmission Date: 20120403
  Serious: Yes (Other)
  Sender: FDA-Public Use
  Company Number: DE-ROCHE-1011703

PATIENT
  Sex: Male

DRUGS (3)
  1. AMIODARONE HCL [Concomitant]
     Dates: start: 20110901
  2. AMIODARONE HCL [Concomitant]
     Dates: start: 20110901
  3. LUCENTIS [Suspect]
     Indication: AGE-RELATED MACULAR DEGENERATION
     Route: 050
     Dates: start: 20110901

REACTIONS (2)
  - ATRIAL FIBRILLATION [None]
  - ARRHYTHMIA [None]
